FAERS Safety Report 9705556 (Version 2)
Quarter: 2013Q4

REPORT INFORMATION
  Report Type: Spontaneous
  Country: US (occurrence: US)
  Receive Date: 20131122
  Receipt Date: 20131122
  Transmission Date: 20140711
  Serious: No
  Sender: FDA-Public Use
  Company Number: US-GILEAD-2008-0016961

PATIENT
  Sex: Male
  Weight: 63.5 kg

DRUGS (19)
  1. LETAIRIS [Suspect]
     Indication: PULMONARY ARTERIAL HYPERTENSION
     Route: 048
     Dates: start: 20080612
  2. ISOSORBIDE MONONITRATE [Concomitant]
     Route: 048
  3. COREG [Concomitant]
     Route: 048
  4. ADVAIR 250/50 [Concomitant]
     Route: 055
  5. NOVOLOG [Concomitant]
     Route: 058
  6. LEVEMIR [Concomitant]
     Dosage: AT NIGHT
     Route: 058
  7. TEMSIROLIMUS [Concomitant]
     Route: 042
  8. ARANESP [Concomitant]
  9. ALTACE [Concomitant]
     Dosage: AT NIGHT
     Route: 048
  10. ASPIRIN [Concomitant]
     Route: 048
  11. PLAVIX [Concomitant]
     Route: 048
  12. LIPITOR [Concomitant]
     Dosage: AT NIGHT
     Route: 048
  13. TESSALON PERLES [Concomitant]
     Route: 048
  14. AMBIEN [Concomitant]
     Route: 048
  15. ALEVE [Concomitant]
     Route: 048
  16. PRILOSEC [Concomitant]
     Route: 048
  17. PHENERGAN [Concomitant]
     Route: 048
  18. NIASPAN [Concomitant]
     Dosage: AT NIGHT
     Route: 048
  19. MVI [Concomitant]
     Route: 048

REACTIONS (2)
  - Blood pressure decreased [Unknown]
  - Haemoglobin abnormal [Unknown]
